FAERS Safety Report 7705807-0 (Version None)
Quarter: 2011Q3

REPORT INFORMATION
  Report Type: 
  Country: None (occurrence: None)
  Receive Date: 20110824
  Receipt Date: 20110824
  Transmission Date: 20111222
  Serious: Yes (Other)
  Sender: FDA-Public Use
  Company Number: None

PATIENT
  Sex: Male
  Weight: 81.646 kg

DRUGS (1)
  1. PERCOCET [Suspect]
     Indication: HEAD INJURY
     Dosage: 2
     Dates: start: 20110809, end: 20110823

REACTIONS (6)
  - AGGRESSION [None]
  - HEADACHE [None]
  - ANGER [None]
  - DRUG DEPENDENCE [None]
  - APHAGIA [None]
  - SLEEP DISORDER [None]
